FAERS Safety Report 20552725 (Version 1)
Quarter: 2022Q1

REPORT INFORMATION
  Report Type: Spontaneous
  Country: US (occurrence: US)
  Receive Date: 20220304
  Receipt Date: 20220304
  Transmission Date: 20220423
  Serious: Yes (Death, Life-Threatening, Hospitalization)
  Sender: FDA-Public Use
  Company Number: US-MYLANLABS-2022M1016627

PATIENT
  Age: 23 Year
  Sex: Female

DRUGS (4)
  1. CYTARABINE [Suspect]
     Active Substance: CYTARABINE
     Indication: Acute myeloid leukaemia
     Dosage: UNK, CYCLE,INDUCTION THERAPY AND HIGH DOSE CONSOLIDATION THERAPY
     Route: 065
  2. PREDNISONE [Suspect]
     Active Substance: PREDNISONE
     Indication: Toxicity to various agents
     Dosage: UNK (IN TAPERING DOSE)
     Route: 065
  3. DAUNORUBICIN [Concomitant]
     Active Substance: DAUNORUBICIN
     Indication: Acute myeloid leukaemia
     Dosage: UNK
     Route: 065
  4. METHOTREXATE [Concomitant]
     Active Substance: METHOTREXATE
     Indication: Prophylaxis
     Dosage: UNK (ONE DOSE)
     Route: 037

REACTIONS (10)
  - Multiple organ dysfunction syndrome [Fatal]
  - Polyneuropathy [Unknown]
  - Guillain-Barre syndrome [Unknown]
  - Pain [Unknown]
  - Muscular weakness [Unknown]
  - Posterior reversible encephalopathy syndrome [Unknown]
  - Metabolic disorder [Unknown]
  - Toxicity to various agents [Unknown]
  - Encephalitis [Unknown]
  - Drug ineffective [Unknown]
